FAERS Safety Report 11349200 (Version 1)
Quarter: 2015Q3

REPORT INFORMATION
  Report Type: Spontaneous
  Country: US (occurrence: US)
  Receive Date: 20150807
  Receipt Date: 20150807
  Transmission Date: 20151125
  Serious: Yes (Other)
  Sender: FDA-Public Use
  Company Number: US-ROCHE-1618931

PATIENT
  Sex: Male
  Weight: 78.09 kg

DRUGS (1)
  1. ESBRIET [Suspect]
     Active Substance: PIRFENIDONE
     Indication: IDIOPATHIC PULMONARY FIBROSIS
     Dosage: THREE TABLETS THREE TIMES A DAY
     Route: 048
     Dates: start: 20150316

REACTIONS (5)
  - Dyspnoea exertional [Unknown]
  - Dizziness [Unknown]
  - Cough [Unknown]
  - Dyspepsia [Unknown]
  - Anxiety [Unknown]
